FAERS Safety Report 7467121-0 (Version None)
Quarter: 2011Q2

REPORT INFORMATION
  Report Type: 
  Country: None (occurrence: None)
  Receive Date: 20110509
  Receipt Date: 20101028
  Transmission Date: 20111010
  Serious: No
  Sender: FDA-Public Use
  Company Number: US-ALEXION-A201001389

PATIENT
  Sex: Male

DRUGS (1)
  1. SOLIRIS [Suspect]
     Indication: PAROXYSMAL NOCTURNAL HAEMOGLOBINURIA
     Dosage: 900 MG, Q2W
     Route: 042
     Dates: start: 20070901

REACTIONS (5)
  - BRONCHITIS [None]
  - PACKED RED BLOOD CELL TRANSFUSION [None]
  - HAEMOGLOBIN DECREASED [None]
  - CHEST PAIN [None]
  - VIRAL UPPER RESPIRATORY TRACT INFECTION [None]
